FAERS Safety Report 5988133-X (Version None)
Quarter: 2008Q4

REPORT INFORMATION
  Report Type: 
  Country: None (occurrence: None)
  Receive Date: 20081209
  Receipt Date: 20081209
  Transmission Date: 20090506
  Serious: Yes (Life-Threatening)
  Sender: FDA-Public Use
  Company Number: None

PATIENT
  Sex: Female
  Weight: 77.1115 kg

DRUGS (1)
  1. BENADRYL [Suspect]
     Indication: SUBSTANCE ABUSE

REACTIONS (4)
  - DRUG ABUSE [None]
  - EUPHORIC MOOD [None]
  - MEDICATION ERROR [None]
  - OVERDOSE [None]
